FAERS Safety Report 23227750 (Version 1)
Quarter: 2023Q4

REPORT INFORMATION
  Report Type: Report from Study
  Country: FR (occurrence: None)
  Receive Date: 20231125
  Receipt Date: 20231125
  Transmission Date: 20240110
  Serious: Yes (Hospitalization)
  Sender: FDA-Public Use
  Company Number: FR-ROCHE-3462398

PATIENT
  Age: 70 Year
  Sex: Male
  Weight: 98 kg

DRUGS (14)
  1. RITUXIMAB [Suspect]
     Active Substance: RITUXIMAB
     Indication: Diffuse large B-cell lymphoma
     Route: 042
     Dates: start: 20230710
  2. EPCORITAMAB [Suspect]
     Active Substance: EPCORITAMAB
     Indication: Diffuse large B-cell lymphoma
     Dosage: 48 MG C1 (STEP-UP), CYCLES 2 - 4 (21-DAY CYCLE, WEEKLY DOSE), C5 - 8 (21-DAY CYCLE, EVERY 3 WEEKS) P
     Route: 058
     Dates: start: 20230711
  3. PREDNISONE [Suspect]
     Active Substance: PREDNISONE
     Indication: Diffuse large B-cell lymphoma
     Dosage: C1-6, DAY 1-5
     Route: 048
     Dates: start: 20230710, end: 20230802
  4. PREDNISONE [Suspect]
     Active Substance: PREDNISONE
     Dosage: C1-6, DAY 1-5
     Route: 048
     Dates: start: 20230803, end: 20230803
  5. PREDNISONE [Suspect]
     Active Substance: PREDNISONE
     Dosage: C1-6, DAY 1-5
     Route: 048
     Dates: start: 20230804
  6. VINCRISTINE [Suspect]
     Active Substance: VINCRISTINE
     Indication: Diffuse large B-cell lymphoma
     Route: 042
     Dates: start: 20230711
  7. CYCLOPHOSPHAMIDE [Suspect]
     Active Substance: CYCLOPHOSPHAMIDE
     Indication: Diffuse large B-cell lymphoma
     Route: 042
     Dates: start: 20230711
  8. DOXORUBICIN [Suspect]
     Active Substance: DOXORUBICIN
     Indication: Diffuse large B-cell lymphoma
     Route: 042
     Dates: start: 20230711
  9. COTRIMOXAZOLE [Concomitant]
     Active Substance: SULFAMETHOXAZOLE\TRIMETHOPRIM
     Route: 065
     Dates: start: 20230710
  10. ESOMEPRAZOLE [Concomitant]
     Active Substance: ESOMEPRAZOLE
     Indication: Gastrooesophageal reflux prophylaxis
     Dates: start: 2005
  11. IRBESARTANA [Concomitant]
     Indication: Hypertension
     Dosage: 300/10 MG, EVERY 1 DAYS
     Dates: start: 2010
  12. IRBESARTANA [Concomitant]
     Dosage: 150/5 MG, EVERY 1 DAYS
     Route: 065
     Dates: start: 20230905
  13. VALACYCLOVIR HYDROCHLORIDE [Concomitant]
     Active Substance: VALACYCLOVIR HYDROCHLORIDE
     Indication: Infection prophylaxis
     Route: 065
     Dates: start: 20230710
  14. ZOPICLONE [Concomitant]
     Active Substance: ZOPICLONE
     Indication: Insomnia
     Route: 065
     Dates: start: 20230729

REACTIONS (1)
  - COVID-19 [Not Recovered/Not Resolved]

NARRATIVE: CASE EVENT DATE: 20231031
